FAERS Safety Report 7710633-2 (Version None)
Quarter: 2011Q3

REPORT INFORMATION
  Report Type: 
  Country: None (occurrence: None)
  Receive Date: 20110825
  Receipt Date: 20110817
  Transmission Date: 20111222
  Serious: Yes (Hospitalization, Other)
  Sender: FDA-Public Use
  Company Number: US-BAXTER-2011BH025846

PATIENT
  Sex: Female

DRUGS (9)
  1. DIANEAL [Suspect]
     Route: 033
     Dates: start: 20110706, end: 20110101
  2. DIANEAL [Suspect]
     Indication: PERITONEAL DIALYSIS
     Route: 033
     Dates: end: 20110531
  3. DIANEAL [Suspect]
     Route: 033
     Dates: start: 20110706, end: 20110101
  4. EXTRANEAL [Suspect]
     Route: 033
     Dates: start: 20110101, end: 20110101
  5. DIANEAL [Suspect]
     Indication: PERITONEAL DIALYSIS
     Route: 033
     Dates: end: 20110531
  6. EXTRANEAL [Suspect]
     Indication: PERITONEAL DIALYSIS
     Route: 033
     Dates: end: 20110531
  7. DIANEAL [Suspect]
     Route: 033
     Dates: start: 20110101, end: 20110101
  8. DIANEAL [Suspect]
     Route: 033
     Dates: start: 20110101, end: 20110101
  9. EXTRANEAL [Suspect]
     Route: 033
     Dates: start: 20110706, end: 20110101

REACTIONS (5)
  - CATHETER SITE RELATED REACTION [None]
  - ULTRAFILTRATION FAILURE [None]
  - INFECTIOUS PERITONITIS [None]
  - DEEP VEIN THROMBOSIS [None]
  - FLUID RETENTION [None]
